FAERS Safety Report 10735149 (Version 1)
Quarter: 2015Q1

REPORT INFORMATION
  Report Type: Spontaneous
  Country: US (occurrence: US)
  Receive Date: 20150125
  Receipt Date: 20150125
  Transmission Date: 20150721
  Serious: No
  Sender: FDA-Public Use
  Company Number: US-ASTRAZENECA-2014SE99060

PATIENT
  Age: 76 Year
  Sex: Male

DRUGS (5)
  1. LUPRON [Suspect]
     Active Substance: LEUPROLIDE ACETATE
     Indication: PROSTATE CANCER
     Dates: start: 20090815
  2. PROVENGE [Suspect]
     Active Substance: SIPULEUCEL-T
     Indication: PROSTATE CANCER
     Dosage: 250 ML,SINGLE,INTRAVENOUS
     Route: 042
     Dates: start: 20140905
  3. PROVENGE [Suspect]
     Active Substance: SIPULEUCEL-T
     Indication: PROSTATE CANCER
     Dosage: 250 ML,SINGLE,INTRAVENOUS
     Route: 042
     Dates: start: 20140814, end: 20140814
  4. CASODEX [Suspect]
     Active Substance: BICALUTAMIDE
     Indication: PROSTATE CANCER
     Route: 048
     Dates: start: 20090815
  5. PROVENGE [Suspect]
     Active Substance: SIPULEUCEL-T
     Indication: PROSTATE CANCER
     Route: 042
     Dates: start: 20140918

REACTIONS (15)
  - Anxiety [Unknown]
  - Dysuria [Unknown]
  - Urinary incontinence [Unknown]
  - Ecchymosis [Unknown]
  - Abdominal pain [Unknown]
  - Constipation [Unknown]
  - Fatigue [Unknown]
  - Appetite disorder [Unknown]
  - Clostridium difficile infection [Unknown]
  - Essential tremor [Unknown]
  - Weight decreased [Unknown]
  - Urine odour abnormal [Unknown]
  - Gynaecomastia [Unknown]
  - Skin disorder [Unknown]
  - Hot flush [Unknown]

NARRATIVE: CASE EVENT DATE: 20140828
